FAERS Safety Report 5126740-7 (Version None)
Quarter: 2006Q4

REPORT INFORMATION
  Report Type: 
  Country: None (occurrence: None)
  Receive Date: 20061010
  Receipt Date: 20060925
  Transmission Date: 20070319
  Serious: Yes (Death, Hospitalization, Other)
  Sender: FDA-Public Use
  Company Number: 2006119097

PATIENT
  Sex: Male

DRUGS (3)
  1. BEXTRA [Suspect]
     Dates: start: 20030401, end: 20040515
  2. CELEBREX [Suspect]
     Dates: start: 20020401, end: 20030301
  3. VIOXX [Suspect]
     Dates: start: 20010401, end: 20020410

REACTIONS (4)
  - CARDIAC FAILURE CONGESTIVE [None]
  - MYOCARDIAL INFARCTION [None]
  - PHARMACEUTICAL PRODUCT COMPLAINT [None]
  - TRANSIENT ISCHAEMIC ATTACK [None]
